FAERS Safety Report 5405662-8 (Version None)
Quarter: 2007Q3

REPORT INFORMATION
  Report Type: 
  Country: None (occurrence: None)
  Receive Date: 20070806
  Receipt Date: 20070727
  Transmission Date: 20080115
  Serious: Yes (Other)
  Sender: FDA-Public Use
  Company Number: PHNU2007DE02672

PATIENT
  Age: 66 Year
  Sex: Male

DRUGS (6)
  1. ZOMETA [Suspect]
     Indication: METASTASES TO BONE
     Dosage: 4 MG, UNK
     Route: 042
     Dates: start: 20020101
  2. FALITHROM ^HEXAL^ [Concomitant]
     Route: 065
  3. ENAHEXAL [Concomitant]
     Route: 065
  4. VASELINE [Concomitant]
     Route: 065
  5. AMOXICILLIN [Concomitant]
     Dosage: 875 MG, UNK
     Route: 065
  6. CLAVULANIC ACID [Concomitant]
     Dosage: 125 MG, UNK
     Route: 065

REACTIONS (6)
  - FISTULA [None]
  - OSTEOLYSIS [None]
  - OSTEONECROSIS [None]
  - PURULENT DISCHARGE [None]
  - TOOTH EXTRACTION [None]
  - X-RAY DENTAL [None]
